FAERS Safety Report 6016380-X (Version None)
Quarter: 2008Q4

REPORT INFORMATION
  Report Type: 
  Country: None (occurrence: None)
  Receive Date: 20081218
  Receipt Date: 20081211
  Transmission Date: 20090506
  Serious: Yes (Life-Threatening, Hospitalization, Disabling, Other)
  Sender: FDA-Public Use
  Company Number: 2008-188375-NL

PATIENT
  Age: 20 Year
  Sex: Female

DRUGS (1)
  1. IMPLANON [Suspect]
     Dosage: SUSDERMAL
     Route: 059
     Dates: start: 20081110

REACTIONS (4)
  - ABNORMAL SLEEP-RELATED EVENT [None]
  - CYANOSIS [None]
  - NERVOUS SYSTEM DISORDER [None]
  - RESUSCITATION [None]
